FAERS Safety Report 8872814 (Version 9)
Quarter: 2014Q1

REPORT INFORMATION
  Report Type: Report from Study
  Country: CA (occurrence: CA)
  Receive Date: 20121030
  Receipt Date: 20140206
  Transmission Date: 20141002
  Serious: Yes (Other)
  Sender: FDA-Public Use
  Company Number: CA-ROCHE-1149865

PATIENT
  Age: 61 Year
  Sex: Female
  Weight: 63 kg

DRUGS (6)
  1. ACTEMRA [Suspect]
     Indication: RHEUMATOID ARTHRITIS
     Route: 042
     Dates: start: 20111124
  2. RITUXAN [Suspect]
     Indication: RHEUMATOID ARTHRITIS
     Route: 042
     Dates: start: 20110113, end: 20110127
  3. METHOTREXATE [Concomitant]
     Route: 058
  4. CIPRALEX [Concomitant]
     Indication: DEPRESSION
  5. FOLIC ACID [Concomitant]
  6. CELEBREX [Concomitant]

REACTIONS (10)
  - Gallbladder disorder [Recovered/Resolved]
  - Sinusitis [Recovered/Resolved]
  - Benign renal neoplasm [Unknown]
  - Vaginal haemorrhage [Unknown]
  - Rheumatoid arthritis [Not Recovered/Not Resolved]
  - Nasopharyngitis [Not Recovered/Not Resolved]
  - Rash [Not Recovered/Not Resolved]
  - Influenza [Unknown]
  - Spinal pain [Recovering/Resolving]
  - Lower respiratory tract infection [Unknown]
